FAERS Safety Report 23616330 (Version 3)
Quarter: 2024Q3

REPORT INFORMATION
  Report Type: Report from Study
  Country: US (occurrence: US)
  Receive Date: 20240311
  Receipt Date: 20240808
  Transmission Date: 20241016
  Serious: Yes (Other)
  Sender: NOVARTIS
  Company Number: US-002147023-NVSC2024US047518

PATIENT
  Sex: Female

DRUGS (1)
  1. KISQALI [Suspect]
     Active Substance: RIBOCICLIB
     Indication: Breast cancer
     Dosage: UNK
     Route: 065

REACTIONS (11)
  - Neuropathy peripheral [Unknown]
  - Breast cancer stage IV [Unknown]
  - Malignant neoplasm progression [Unknown]
  - Constipation [Unknown]
  - Rash [Unknown]
  - Pain in extremity [Unknown]
  - Feeling cold [Unknown]
  - Dysphagia [Unknown]
  - Weight decreased [Unknown]
  - Asthenia [Unknown]
  - Illness [Unknown]
